FAERS Safety Report 25118372 (Version 1)
Quarter: 2025Q1

REPORT INFORMATION
  Report Type: Report from Study
  Country: US (occurrence: US)
  Receive Date: 20250325
  Receipt Date: 20250325
  Transmission Date: 20250408
  Serious: No
  Sender: AVERITAS
  Company Number: US-GRUNENTHAL-2025-104257

PATIENT
  Sex: Male

DRUGS (2)
  1. QUTENZA [Suspect]
     Active Substance: CAPSAICIN
     Indication: Diabetic neuropathy
     Route: 061
     Dates: start: 202502, end: 202502
  2. QUTENZA [Suspect]
     Active Substance: CAPSAICIN
     Indication: Hypoaesthesia
     Route: 061

REACTIONS (1)
  - Application site burn [Unknown]
